FAERS Safety Report 8774839 (Version 2)
Quarter: 2013Q4

REPORT INFORMATION
  Report Type: Spontaneous
  Country: US (occurrence: US)
  Receive Date: 20120910
  Receipt Date: 20131101
  Transmission Date: 20140711
  Serious: No
  Sender: FDA-Public Use
  Company Number: US-009507513-1209USA000313

PATIENT
  Age: 75 Year
  Sex: Female

DRUGS (1)
  1. AZASITE [Suspect]
     Indication: INFECTION
     Dosage: ONE DROP IN EACH EYE, BID
     Route: 047
     Dates: start: 20120822

REACTIONS (3)
  - Drug ineffective [Not Recovered/Not Resolved]
  - Eye pruritus [Not Recovered/Not Resolved]
  - Lacrimation increased [Not Recovered/Not Resolved]
